FAERS Safety Report 13534563 (Version 2)
Quarter: 2017Q2

REPORT INFORMATION
  Report Type: Spontaneous
  Country: IT (occurrence: IT)
  Receive Date: 20170511
  Receipt Date: 20170518
  Transmission Date: 20170830
  Serious: Yes (Other)
  Sender: FDA-Public Use
  Company Number: IT-TOLMAR, INC.-2017IT005785

PATIENT
  Age: 55 Year
  Sex: Male
  Weight: 75 kg

DRUGS (1)
  1. ELIGARD [Suspect]
     Active Substance: LEUPROLIDE ACETATE
     Indication: PROSTATE CANCER
     Dosage: 22.5 MG, CYCLIC
     Route: 058
     Dates: start: 20161101, end: 20170415

REACTIONS (2)
  - Drug ineffective [Unknown]
  - Blood testosterone abnormal [Not Recovered/Not Resolved]

NARRATIVE: CASE EVENT DATE: 20170415
